FAERS Safety Report 9404416 (Version 1)
Quarter: 2013Q3

REPORT INFORMATION
  Report Type: Spontaneous
  Country: US (occurrence: None)
  Receive Date: 20130711
  Receipt Date: 20130711
  Transmission Date: 20140515
  Serious: Yes (Other)
  Sender: FDA-Public Use
  Company Number: 2013P1005284

PATIENT
  Age: 68 Year
  Sex: Female

DRUGS (2)
  1. INFUMORPH [Suspect]
     Indication: PAIN
     Route: 037
  2. INFUMORPH [Suspect]
     Indication: COMPLEX REGIONAL PAIN SYNDROME
     Route: 037

REACTIONS (3)
  - Neoplasm malignant [None]
  - Weight decreased [None]
  - Medical device discomfort [None]
